FAERS Safety Report 8666732 (Version 2)
Quarter: 2013Q1

REPORT INFORMATION
  Report Type: Spontaneous
  Country: IT (occurrence: IT)
  Receive Date: 20120716
  Receipt Date: 20130206
  Transmission Date: 20140127
  Serious: Yes (Hospitalization)
  Sender: FDA-Public Use
  Company Number: IT-ELI_LILLY_AND_COMPANY-IT201207001432

PATIENT
  Age: 76 Year
  Sex: Female

DRUGS (7)
  1. ALIMTA [Suspect]
     Indication: LUNG ADENOCARCINOMA
     Dosage: 875 MG, PER CYCLE
     Route: 042
     Dates: start: 20120330, end: 20120420
  2. CARBOPLATIN [Concomitant]
     Indication: LUNG ADENOCARCINOMA STAGE III
     Dosage: 350 MG, UNKNOWN
     Route: 042
     Dates: start: 20120330, end: 20120424
  3. DOBETIN [Concomitant]
     Indication: PROPHYLAXIS
     Dosage: 1000 UG, UNKNOWN
     Route: 030
     Dates: start: 20120320, end: 20120420
  4. FOLIC ACID [Concomitant]
     Indication: PROPHYLAXIS
     Dosage: 400 UG, QD
     Route: 048
     Dates: start: 20120320, end: 20120420
  5. RANIDIL [Concomitant]
     Indication: PROPHYLAXIS AGAINST GASTROINTESTINAL ULCER
     Dosage: 50 MG, UNKNOWN
     Route: 042
     Dates: start: 20120330, end: 20120420
  6. NOVOBAN [Concomitant]
     Indication: PROPHYLAXIS OF NAUSEA AND VOMITING
     Dosage: 5 MG, UNKNOWN
     Route: 042
     Dates: start: 20120330, end: 20120420
  7. TRIMETON [Concomitant]
     Indication: ANAPHYLAXIS PROPHYLAXIS
     Dosage: 10 MG, UNKNOWN
     Route: 042
     Dates: start: 20120330, end: 20120420

REACTIONS (4)
  - Dyspnoea [Recovered/Resolved]
  - Pneumonia [Recovered/Resolved]
  - Pancytopenia [Recovered/Resolved]
  - Off label use [Recovered/Resolved]
